FAERS Safety Report 22241601 (Version 3)
Quarter: 2023Q2

REPORT INFORMATION
  Report Type: Spontaneous
  Country: US (occurrence: US)
  Receive Date: 20230421
  Receipt Date: 20230629
  Transmission Date: 20230722
  Serious: No
  Sender: FDA-Public Use
  Company Number: US-PFIZER INC-PV202300066720

PATIENT
  Age: 73 Year
  Sex: Male

DRUGS (2)
  1. CIBINQO [Suspect]
     Active Substance: ABROCITINIB
     Indication: Skin disorder
     Dosage: 200 MG, 1X/DAY (ONCE DAILY)
     Route: 048
  2. CIBINQO [Suspect]
     Active Substance: ABROCITINIB
     Dosage: 100 MG, DAILY
     Route: 048

REACTIONS (2)
  - Therapeutic product effect incomplete [Unknown]
  - Intentional product use issue [Unknown]
